FAERS Safety Report 6686170-3 (Version None)
Quarter: 2010Q2

REPORT INFORMATION
  Report Type: 
  Country: None (occurrence: None)
  Receive Date: 20100419
  Receipt Date: 20100412
  Transmission Date: 20101027
  Serious: Yes (Hospitalization)
  Sender: FDA-Public Use
  Company Number: PHHO2010KR05348

PATIENT
  Sex: Male
  Weight: 68.4 kg

DRUGS (1)
  1. TASIGNA [Suspect]
     Indication: EOSINOPHILIC LEUKAEMIA
     Dosage: 400MG
     Dates: start: 20100405

REACTIONS (2)
  - ASPIRATION PLEURAL CAVITY [None]
  - PLEURAL EFFUSION [None]
